FAERS Safety Report 21227158 (Version 1)
Quarter: 2022Q3

REPORT INFORMATION
  Report Type: Spontaneous
  Country: US (occurrence: None)
  Receive Date: 20220817
  Receipt Date: 20220817
  Transmission Date: 20221027
  Serious: Yes (Life-Threatening, Hospitalization)
  Sender: FDA-Public Use
  Company Number: None

PATIENT
  Age: 71 Year
  Sex: Female
  Weight: 62.3 kg

DRUGS (3)
  1. PAXLOVID [Suspect]
     Active Substance: NIRMATRELVIR\RITONAVIR
     Indication: COVID-19
     Dosage: FREQUENCY : TWICE A DAY;?
     Route: 048
     Dates: start: 20220814, end: 20220815
  2. verapamil 200mg Extended release [Concomitant]
  3. NADOLOL [Concomitant]
     Active Substance: NADOLOL

REACTIONS (13)
  - Palpitations [None]
  - Vision blurred [None]
  - Dizziness [None]
  - General physical health deterioration [None]
  - Haemodialysis [None]
  - Hyperkalaemia [None]
  - Pleural effusion [None]
  - Oedema [None]
  - Encephalopathy [None]
  - Metabolic acidosis [None]
  - Agitation [None]
  - Hypotension [None]
  - Bradycardia [None]

NARRATIVE: CASE EVENT DATE: 20220815
